FAERS Safety Report 17367953 (Version 1)
Quarter: 2020Q1

REPORT INFORMATION
  Report Type: Spontaneous
  Country: US (occurrence: US)
  Receive Date: 20200118
  Receipt Date: 20200118
  Transmission Date: 20200409
  Serious: Yes (Hospitalization)
  Sender: FDA-Public Use
  Company Number: None

PATIENT
  Age: 69 Year
  Sex: Male
  Weight: 122.4 kg

DRUGS (3)
  1. SGN-35 (BRENTUXIMAB VEDOTIN) [Suspect]
     Active Substance: BRENTUXIMAB VEDOTIN
     Dates: end: 20191213
  2. DOXORUBICIN HYDROCHLORIDE. [Suspect]
     Active Substance: DOXORUBICIN HYDROCHLORIDE
     Dates: end: 20191213
  3. DACARBAZINE. [Suspect]
     Active Substance: DACARBAZINE
     Dates: end: 20191213

REACTIONS (14)
  - Thrombocytopenia [None]
  - Tachypnoea [None]
  - Acute kidney injury [None]
  - Fall [None]
  - Mental status changes [None]
  - Pneumonia [None]
  - Sepsis [None]
  - Encephalopathy [None]
  - Atrial fibrillation [None]
  - Neutropenia [None]
  - Hypovolaemia [None]
  - Renal tubular necrosis [None]
  - Hypotension [None]
  - Unresponsive to stimuli [None]

NARRATIVE: CASE EVENT DATE: 20191216
